FAERS Safety Report 4778181-X (Version None)
Quarter: 2005Q3

REPORT INFORMATION
  Report Type: 
  Country: None (occurrence: None)
  Receive Date: 20050922
  Receipt Date: 20050913
  Transmission Date: 20060218
  Serious: Yes (Disabling, Other)
  Sender: FDA-Public Use
  Company Number: 2005127126

PATIENT
  Age: 54 Year
  Sex: Female
  Weight: 72.5755 kg

DRUGS (11)
  1. LIPITOR [Suspect]
     Indication: BLOOD CHOLESTEROL INCREASED
     Dosage: 10 MG (10 MG, 1 IN 1 D)
  2. ZYRTEC [Suspect]
     Indication: MULTIPLE ALLERGIES
     Dosage: 10 MG (10 MG, 1 IN 1 D)
  3. DIFLUCAN [Suspect]
     Indication: FUNGAL INFECTION
     Dosage: 150 MG
  4. RITALIN [Concomitant]
  5. CONCERTA [Concomitant]
  6. CORTISONE ACETATE [Concomitant]
  7. PRENISONE (PREDNISONE) [Concomitant]
  8. ZETIA [Concomitant]
  9. ASTELIN [Concomitant]
  10. MONTELUKAST (MONTELUKAST) [Concomitant]
  11. ALL OTHER THERAPEUTIC PRODUCTS (ALL OTHER THERAPEUTIC PRODUCTS) [Concomitant]

REACTIONS (9)
  - BODY HEIGHT DECREASED [None]
  - CYSTITIS [None]
  - OEDEMA PERIPHERAL [None]
  - OSTEOPOROSIS [None]
  - QUADRIPARESIS [None]
  - ROTATOR CUFF SYNDROME [None]
  - SELF-MEDICATION [None]
  - SINUS DISORDER [None]
  - SURGERY [None]
